FAERS Safety Report 11780112 (Version 1)
Quarter: 2015Q4

REPORT INFORMATION
  Report Type: Spontaneous
  Country: US (occurrence: US)
  Receive Date: 20151126
  Receipt Date: 20151126
  Transmission Date: 20160304
  Serious: No
  Sender: FDA-Public Use
  Company Number: US-JNJFOC-20151015008

PATIENT
  Age: 82 Year
  Sex: Female
  Weight: 82.56 kg

DRUGS (1)
  1. CHILDRENS TYLENOL [Suspect]
     Active Substance: ACETAMINOPHEN
     Indication: HEADACHE
     Dosage: 1-2 MELTAWAYS WHEN NEEDED
     Route: 048

REACTIONS (1)
  - Drug administered to patient of inappropriate age [Unknown]
